FAERS Safety Report 8921961 (Version 1)
Quarter: 2012Q4

REPORT INFORMATION
  Report Type: Spontaneous
  Country: US (occurrence: None)
  Receive Date: 20121119
  Receipt Date: 20121119
  Transmission Date: 20130627
  Serious: Yes (Disabling, Other)
  Sender: FDA-Public Use
  Company Number: None

PATIENT
  Age: 66 Year
  Sex: Female
  Weight: 96.62 kg

DRUGS (1)
  1. TERBINAFINE [Suspect]
     Indication: ONYCHOMYCOSIS
     Dosage: 1 tablet  1x daily po
     Route: 048
     Dates: start: 20120815, end: 20121015

REACTIONS (8)
  - Dysgeusia [None]
  - Decreased appetite [None]
  - Oropharyngeal pain [None]
  - Lymphadenopathy [None]
  - Dizziness [None]
  - Alopecia [None]
  - Rash [None]
  - Feeling abnormal [None]
